FAERS Safety Report 8594836 (Version 2)
Quarter: 2012Q4

REPORT INFORMATION
  Report Type: 
  Country: US (occurrence: US)
  Receive Date: 20120604
  Receipt Date: 20121010
  Transmission Date: 20130627
  Serious: Yes (Hospitalization)
  Sender: FDA-Public Use
  Company Number: US-BAYER-2012-053742

PATIENT
  Age: 21 Year
  Sex: Female
  Weight: 117.91 kg

DRUGS (6)
  1. OCELLA [Suspect]
     Indication: CONTRACEPTION
     Dosage: UNK
     Dates: start: 201107, end: 201112
  2. YAZ [Suspect]
  3. ANTIBIOTICS [Concomitant]
  4. NSAID^S [Concomitant]
  5. ANTIMIGRAINE PREPARATIONS [Concomitant]
  6. OTHER ANALGESICS AND ANTIPYRETICS [Concomitant]

REACTIONS (7)
  - Pulmonary embolism [None]
  - Pulmonary infarction [None]
  - Injury [None]
  - Pain [None]
  - Emotional distress [None]
  - Anxiety [None]
  - General physical health deterioration [None]
